FAERS Safety Report 5365527-7 (Version None)
Quarter: 2007Q2

REPORT INFORMATION
  Report Type: 
  Country: None (occurrence: None)
  Receive Date: 20070621
  Receipt Date: 20070618
  Transmission Date: 20071010
  Serious: Yes (Hospitalization)
  Sender: FDA-Public Use
  Company Number: A0657234A

PATIENT
  Age: 36 Year
  Sex: Male

DRUGS (7)
  1. AVANDIA [Suspect]
     Dosage: 10MG TWICE PER DAY
     Route: 048
     Dates: start: 20050601
  2. GLUCOPHAGE [Concomitant]
  3. INSULIN [Concomitant]
  4. UNKNOWN MEDICATION [Concomitant]
  5. GLIPIZIDE [Concomitant]
  6. COUMADIN [Concomitant]
  7. LOVENOX [Concomitant]

REACTIONS (1)
  - THROMBOSIS [None]
